FAERS Safety Report 5631692-7 (Version None)
Quarter: 2008Q1

REPORT INFORMATION
  Report Type: 
  Country: None (occurrence: None)
  Receive Date: 20080220
  Receipt Date: 20080214
  Transmission Date: 20080703
  Serious: Yes (Other)
  Sender: FDA-Public Use
  Company Number: DE-JNJFOC-20080201615

PATIENT
  Age: 43 Year
  Sex: Female
  Weight: 60 kg

DRUGS (5)
  1. INVEGA [Suspect]
     Indication: DELUSIONAL DISORDER, PERSECUTORY TYPE
     Route: 048
  2. ERGENYL CHRONO [Concomitant]
     Dosage: 1-0-0-1
     Route: 065
  3. TAVOR [Concomitant]
     Indication: DELUSIONAL DISORDER, PERSECUTORY TYPE
     Route: 048
  4. EUTHYROX [Concomitant]
     Indication: HYPOTHYROIDISM
     Dosage: 1-0-0
     Route: 048
  5. TREVILOR [Concomitant]
     Dosage: 1-1-0-0
     Route: 065

REACTIONS (1)
  - HEPATIC ENZYME INCREASED [None]
